FAERS Safety Report 9437543 (Version 1)
Quarter: 2013Q3

REPORT INFORMATION
  Report Type: Spontaneous
  Country: US (occurrence: US)
  Receive Date: 20130802
  Receipt Date: 20130802
  Transmission Date: 20140515
  Serious: Yes (Hospitalization, Other)
  Sender: FDA-Public Use
  Company Number: US-MYLANLABS-2013S1016722

PATIENT
  Age: 41 Year
  Sex: Female

DRUGS (3)
  1. CLONIDINE [Suspect]
  2. VIIBRYD [Suspect]
  3. NEURONTIN [Suspect]

REACTIONS (2)
  - Suicide attempt [Recovered/Resolved]
  - Intentional overdose [Recovered/Resolved]
